FAERS Safety Report 9208897 (Version 1)
Quarter: 2013Q2

REPORT INFORMATION
  Report Type: Report from Study
  Country: CA (occurrence: CA)
  Receive Date: 20130404
  Receipt Date: 20130404
  Transmission Date: 20140414
  Serious: Yes (Other)
  Sender: FDA-Public Use
  Company Number: CA-JNJFOC-20130317578

PATIENT
  Age: 23 Year
  Sex: Female
  Weight: 123 kg

DRUGS (1)
  1. REMICADE [Suspect]
     Indication: COLITIS ULCERATIVE
     Dosage: ^PORT A CATH^
     Route: 042

REACTIONS (1)
  - Intracranial pressure increased [Not Recovered/Not Resolved]
